FAERS Safety Report 9758738 (Version 1)
Quarter: 2013Q4

REPORT INFORMATION
  Report Type: Spontaneous
  Country: US (occurrence: None)
  Receive Date: 20131216
  Receipt Date: 20131216
  Transmission Date: 20140711
  Serious: Yes (Other)
  Sender: FDA-Public Use
  Company Number: 059831

PATIENT
  Sex: Female

DRUGS (1)
  1. CIMZIA [Suspect]
     Indication: CROHN^S DISEASE
     Dosage: (400 MG 1X/2 WEEKS, 400 MG AT WEEK 0, 2 AND 4.), (400 MG 1X/4 WEEKS, MAINTENANCE DOSE OF 400 MG EVER

REACTIONS (1)
  - Surgery [None]
